FAERS Safety Report 6073789-6 (Version None)
Quarter: 2009Q1

REPORT INFORMATION
  Report Type: 
  Country: None (occurrence: None)
  Receive Date: 20090211
  Receipt Date: 20090204
  Transmission Date: 20090719
  Serious: Yes (Hospitalization)
  Sender: FDA-Public Use
  Company Number: US-BIOGENIDEC-2006BI005938

PATIENT
  Age: 59 Year
  Sex: Female
  Weight: 56 kg

DRUGS (4)
  1. AVONEX [Suspect]
     Indication: MULTIPLE SCLEROSIS
     Route: 030
     Dates: start: 19970401
  2. AVONEX [Suspect]
     Route: 030
     Dates: end: 20060101
  3. AVONEX [Suspect]
     Route: 030
     Dates: start: 20060101, end: 20060407
  4. AVONEX [Suspect]
     Route: 030
     Dates: start: 20060414

REACTIONS (11)
  - ANGINA UNSTABLE [None]
  - CORONARY ARTERY OCCLUSION [None]
  - EYELID OEDEMA [None]
  - HYPERTENSION [None]
  - HYPOTENSION [None]
  - LIP SWELLING [None]
  - MYOCARDIAL INFARCTION [None]
  - OEDEMA PERIPHERAL [None]
  - RETINAL HAEMORRHAGE [None]
  - SOMNOLENCE [None]
  - VISUAL IMPAIRMENT [None]
